FAERS Safety Report 7651660-3 (Version None)
Quarter: 2011Q3

REPORT INFORMATION
  Report Type: 
  Country: None (occurrence: None)
  Receive Date: 20110802
  Receipt Date: 20110225
  Transmission Date: 20111222
  Serious: No
  Sender: FDA-Public Use
  Company Number: US-BAYER-2011-017952

PATIENT
  Sex: Female

DRUGS (2)
  1. KLARON [SALICYLIC ACID,SULFUR] [Suspect]
     Indication: ROSACEA
     Dosage: UNK UNK, BID
     Dates: start: 20100801, end: 20100801
  2. FINACEA [Suspect]
     Indication: ROSACEA
     Dosage: UNK UNK, QD
     Route: 061
     Dates: start: 20100801, end: 20100801

REACTIONS (1)
  - SKIN DISORDER [None]
